FAERS Safety Report 10155444 (Version 1)
Quarter: 2014Q2

REPORT INFORMATION
  Report Type: Spontaneous
  Country: AU (occurrence: AU)
  Receive Date: 20140506
  Receipt Date: 20140506
  Transmission Date: 20141212
  Serious: Yes (Hospitalization)
  Sender: FDA-Public Use
  Company Number: PHHY2014AU053071

PATIENT
  Age: 75 Year
  Sex: Male

DRUGS (3)
  1. TRIMETHOPRIM [Suspect]
     Indication: URINARY TRACT INFECTION
     Dosage: 300 MG, DAILY
  2. LERCANIDIPINE [Concomitant]
     Dosage: 10 MG, DAILY
  3. FLUTICASONE W/SALMETEROL [Concomitant]

REACTIONS (6)
  - Renal tubular acidosis [Unknown]
  - Hyponatraemia [Unknown]
  - Hypovolaemia [Unknown]
  - Altered state of consciousness [Unknown]
  - Blood pressure systolic decreased [Unknown]
  - Hyperkalaemia [Unknown]
